FAERS Safety Report 10041785 (Version 1)
Quarter: 2014Q1

REPORT INFORMATION
  Report Type: Spontaneous
  Country: AT (occurrence: None)
  Receive Date: 20140325
  Receipt Date: 20140325
  Transmission Date: 20141002
  Serious: Yes (Hospitalization)
  Sender: FDA-Public Use
  Company Number: FK201400994

PATIENT
  Age: 66 Year
  Sex: Female

DRUGS (5)
  1. FLUOROURACIL (FLUOROURACIL) [Suspect]
     Indication: RECTAL ADENOCARCINOMA
  2. IRINOTECAN (IRINOTECAN) [Suspect]
  3. BEVACIZUMAB (BEVACIZUMAB) [Suspect]
  4. LEUCOVORIN (CALCIUM FOLINATE) [Concomitant]
  5. ONDANSETRON (ONDANSETRON) [Concomitant]

REACTIONS (12)
  - Cardiomyopathy [None]
  - Cardiogenic shock [None]
  - Cerebellar infarction [None]
  - Dehydration [None]
  - Fatigue [None]
  - Decreased appetite [None]
  - Nausea [None]
  - Vomiting [None]
  - Sinus tachycardia [None]
  - Hypomagnesaemia [None]
  - Electrolyte imbalance [None]
  - Vertigo [None]
